FAERS Safety Report 24195095 (Version 1)
Quarter: 2024Q3

REPORT INFORMATION
  Report Type: Spontaneous
  Country: US (occurrence: US)
  Receive Date: 20240809
  Receipt Date: 20240809
  Transmission Date: 20241017
  Serious: No
  Sender: ANI
  Company Number: US-ANIPHARMA-2024-US-025104

PATIENT
  Age: 65 Year
  Sex: Female

DRUGS (1)
  1. CORTICOTROPIN [Suspect]
     Active Substance: CORTICOTROPIN
     Indication: Systemic lupus erythematosus
     Dosage: 80 UNITS EVERY 3 DAYS
     Route: 058
     Dates: start: 202308

REACTIONS (2)
  - Herpes zoster [Not Recovered/Not Resolved]
  - Urinary tract infection [Recovered/Resolved]
